FAERS Safety Report 24035952 (Version 2)
Quarter: 2024Q3

REPORT INFORMATION
  Report Type: Spontaneous
  Country: US (occurrence: US)
  Receive Date: 20240701
  Receipt Date: 20240708
  Transmission Date: 20241017
  Serious: Yes (Death)
  Sender: LUNDBECK
  Company Number: US-LUNDBECK-DKLU4000916

PATIENT

DRUGS (3)
  1. NORTHERA [Suspect]
     Active Substance: DROXIDOPA
     Indication: Orthostatic hypotension
     Dosage: 300 003
     Route: 048
     Dates: start: 201902
  2. ELIQUIS [Concomitant]
     Active Substance: APIXABAN
     Indication: Product used for unknown indication
     Dosage: 5 003
  3. METOPROLOL [Concomitant]
     Active Substance: METOPROLOL
     Indication: Product used for unknown indication
     Dosage: 25 003

REACTIONS (1)
  - Death [Fatal]

NARRATIVE: CASE EVENT DATE: 20240617
